FAERS Safety Report 14756144 (Version 1)
Quarter: 2018Q2

REPORT INFORMATION
  Report Type: Spontaneous
  Country: IN (occurrence: IN)
  Receive Date: 20180413
  Receipt Date: 20180413
  Transmission Date: 20180711
  Serious: Yes (Hospitalization, Other)
  Sender: FDA-Public Use
  Company Number: IN-TORRENT-00001670

PATIENT
  Age: 47 Year
  Sex: Female

DRUGS (2)
  1. DIVALPROATE [Concomitant]
     Active Substance: DIVALPROEX SODIUM
     Indication: BIPOLAR I DISORDER
     Dosage: UNKNOWN
  2. RISPERIDONE. [Suspect]
     Active Substance: RISPERIDONE
     Indication: BIPOLAR I DISORDER
     Dosage: UNKNOWN

REACTIONS (3)
  - Tremor [Recovered/Resolved]
  - Rabbit syndrome [Recovered/Resolved]
  - Treatment noncompliance [Unknown]
